FAERS Safety Report 8558985-8 (Version None)
Quarter: 2012Q3

REPORT INFORMATION
  Report Type: 
  Country: None (occurrence: None)
  Receive Date: 20120802
  Receipt Date: 20120723
  Transmission Date: 20120928
  Serious: No
  Sender: FDA-Public Use
  Company Number: US-009507513-1207USA009958

PATIENT

DRUGS (7)
  1. ATORVASTATIN CALCIUM [Suspect]
     Dosage: UNK
  2. LORAZEPAM [Concomitant]
     Dosage: UNK, PRN
  3. PINDOLOL [Concomitant]
     Dosage: UNK
  4. PLAVIX [Concomitant]
  5. AMLODIPINE [Concomitant]
  6. ACIPHEX [Concomitant]
  7. ZOCOR [Suspect]
     Dosage: 20 MG, QD
     Route: 048

REACTIONS (2)
  - ADVERSE REACTION [None]
  - INSOMNIA [None]
